FAERS Safety Report 5133905-7 (Version None)
Quarter: 2006Q4

REPORT INFORMATION
  Report Type: 
  Country: None (occurrence: None)
  Receive Date: 20061023
  Receipt Date: 20061023
  Transmission Date: 20070319
  Serious: Yes (Life-Threatening, Hospitalization)
  Sender: FDA-Public Use
  Company Number: None

PATIENT
  Sex: Male
  Weight: 83.9154 kg

DRUGS (4)
  1. LAMISIL [Suspect]
     Indication: FUNGAL INFECTION
     Dosage: 3 MONTHS
     Dates: start: 19810101
  2. LAMISIL [Suspect]
     Indication: ONYCHOMYCOSIS
     Dosage: 3 MONTHS
     Dates: start: 19810101
  3. LAMISIL [Suspect]
     Indication: FUNGAL INFECTION
     Dosage: 3 MONTHS
     Dates: start: 20050101
  4. LAMISIL [Suspect]
     Indication: ONYCHOMYCOSIS
     Dosage: 3 MONTHS
     Dates: start: 20050101

REACTIONS (3)
  - MALIGNANT MELANOMA [None]
  - OEDEMA PERIPHERAL [None]
  - RECURRENT CANCER [None]
